FAERS Safety Report 6142643-3 (Version None)
Quarter: 2009Q2

REPORT INFORMATION
  Report Type: 
  Country: None (occurrence: None)
  Receive Date: 20090403
  Receipt Date: 20090327
  Transmission Date: 20091009
  Serious: Yes (Hospitalization)
  Sender: FDA-Public Use
  Company Number: FR-ASTRAZENECA-2009CG00612

PATIENT
  Age: 48 Year
  Sex: Female

DRUGS (1)
  1. HYTACAND [Suspect]
     Dosage: 480 + 375 MG
     Route: 048
     Dates: start: 20090324, end: 20090324

REACTIONS (3)
  - BLOOD PRESSURE DECREASED [None]
  - INTENTIONAL OVERDOSE [None]
  - SUICIDE ATTEMPT [None]
